FAERS Safety Report 16771129 (Version 1)
Quarter: 2019Q3

REPORT INFORMATION
  Report Type: Spontaneous
  Country: US (occurrence: US)
  Receive Date: 20190904
  Receipt Date: 20190904
  Transmission Date: 20191005
  Serious: No
  Sender: FDA-Public Use
  Company Number: US-MYLANLABS-2019M1078518

PATIENT
  Sex: Female
  Weight: 79 kg

DRUGS (1)
  1. EMSAM [Suspect]
     Active Substance: SELEGILINE
     Indication: DEPRESSION
     Dosage: ONE PATCH WORN DAILY
     Route: 062

REACTIONS (5)
  - Emotional disorder [Not Recovered/Not Resolved]
  - Application site erythema [Not Recovered/Not Resolved]
  - Application site rash [Not Recovered/Not Resolved]
  - Mental disorder [Not Recovered/Not Resolved]
  - Product adhesion issue [Unknown]
